FAERS Safety Report 5781989-5 (Version None)
Quarter: 2008Q2

REPORT INFORMATION
  Report Type: 
  Country: None (occurrence: None)
  Receive Date: 20080623
  Receipt Date: 20080129
  Transmission Date: 20081010
  Serious: No
  Sender: FDA-Public Use
  Company Number: US-ASTRAZENECA-2008UW02058

PATIENT
  Age: 59 Year
  Sex: Female

DRUGS (3)
  1. RHINOCORT [Suspect]
     Indication: MULTIPLE ALLERGIES
     Route: 045
     Dates: start: 20040101
  2. LIPITOR [Concomitant]
  3. LYRICA [Concomitant]

REACTIONS (2)
  - NASAL DISCOMFORT [None]
  - NAUSEA [None]
